FAERS Safety Report 12855540 (Version 1)
Quarter: 2016Q4

REPORT INFORMATION
  Report Type: Spontaneous
  Country: US (occurrence: US)
  Receive Date: 20161017
  Receipt Date: 20161017
  Transmission Date: 20170207
  Serious: No
  Sender: FDA-Public Use
  Company Number: US-ASTRAZENECA-2016SF03375

PATIENT

DRUGS (6)
  1. STATIN [Concomitant]
     Active Substance: UNSPECIFIED INGREDIENT
  2. ACE INHIBITOR [Concomitant]
     Active Substance: UNSPECIFIED INGREDIENT
  3. THYROID MEDICATION [Concomitant]
     Active Substance: UNSPECIFIED INGREDIENT
  4. BETA BLOCKER [Concomitant]
     Active Substance: UNSPECIFIED INGREDIENT
  5. BRILINTA [Suspect]
     Active Substance: TICAGRELOR
     Route: 048
  6. LOW DOSE ASPIRIN [Concomitant]
     Active Substance: ASPIRIN

REACTIONS (2)
  - Dyspnoea [Unknown]
  - Off label use [Unknown]
